FAERS Safety Report 9445725 (Version 1)
Quarter: 2013Q3

REPORT INFORMATION
  Report Type: Spontaneous
  Country: US (occurrence: US)
  Receive Date: 20130807
  Receipt Date: 20130807
  Transmission Date: 20140515
  Serious: Yes (Life-Threatening, Other)
  Sender: FDA-Public Use
  Company Number: US-ASTRAZENECA-2012SE56506

PATIENT
  Age: 75 Year
  Sex: Female
  Weight: 54.4 kg

DRUGS (12)
  1. SEROQUEL [Suspect]
     Indication: BIPOLAR DISORDER
     Route: 048
  2. SEROQUEL [Suspect]
     Indication: BIPOLAR DISORDER
     Route: 048
  3. SEROQUEL [Suspect]
     Indication: BIPOLAR DISORDER
     Route: 048
  4. SEROQUEL [Suspect]
     Indication: BIPOLAR DISORDER
     Route: 048
  5. SEROQUEL [Suspect]
     Indication: BIPOLAR DISORDER
     Dosage: GENERIC
     Route: 048
  6. ZOLOFT [Concomitant]
  7. ZOCOR [Concomitant]
  8. DIGOXIN [Concomitant]
  9. LASIX [Concomitant]
     Dosage: BIWK
  10. PREVACID [Concomitant]
     Indication: GASTROOESOPHAGEAL REFLUX DISEASE
  11. COREG [Concomitant]
  12. DEPAKOTE [Concomitant]
     Dosage: BID

REACTIONS (4)
  - Suicide attempt [Unknown]
  - Disease progression [Unknown]
  - Dementia [Unknown]
  - Drug dose omission [Unknown]
